FAERS Safety Report 17111160 (Version 1)
Quarter: 2019Q4

REPORT INFORMATION
  Report Type: Spontaneous
  Country: US (occurrence: US)
  Receive Date: 20191204
  Receipt Date: 20191204
  Transmission Date: 20200122
  Serious: No
  Sender: FDA-Public Use
  Company Number: US-APOTEX-2019AP025525

PATIENT
  Age: 64 Year
  Sex: Male

DRUGS (3)
  1. CLOZAPINE. [Concomitant]
     Active Substance: CLOZAPINE
     Dosage: 100 MG, DAILY
     Route: 065
  2. LITHIUM CARBONATE. [Suspect]
     Active Substance: LITHIUM CARBONATE
     Indication: BLOOD COUNT ABNORMAL
     Dosage: 300 MG, Q.H.S.
     Route: 065
  3. CLOZAPINE. [Concomitant]
     Active Substance: CLOZAPINE
     Indication: SCHIZOPHRENIA
     Dosage: 150 MG, DAILY
     Route: 065

REACTIONS (1)
  - Blood creatinine increased [Recovered/Resolved]
